FAERS Safety Report 8435309-8 (Version None)
Quarter: 2012Q2

REPORT INFORMATION
  Report Type: 
  Country: None (occurrence: None)
  Receive Date: 20120608
  Receipt Date: 20120531
  Transmission Date: 20120825
  Serious: Yes (Hospitalization)
  Sender: FDA-Public Use
  Company Number: 2012SP029998

PATIENT
  Age: 67 Year
  Sex: Male
  Weight: 58 kg

DRUGS (1)
  1. SYCREST (ASENAPINE / 05706901/ ) [Suspect]
     Indication: BIPOLAR I DISORDER
     Dates: end: 20111216

REACTIONS (3)
  - MANIA [None]
  - CONDITION AGGRAVATED [None]
  - DRUG INEFFECTIVE [None]
